FAERS Safety Report 13355413 (Version 1)
Quarter: 2017Q1

REPORT INFORMATION
  Report Type: Report from Study
  Country: US (occurrence: US)
  Receive Date: 20170321
  Receipt Date: 20170321
  Transmission Date: 20170429
  Serious: Yes (Hospitalization)
  Sender: FDA-Public Use
  Company Number: US-MYLANLABS-2017M1017216

PATIENT

DRUGS (3)
  1. EPOPROSTENOL. [Suspect]
     Active Substance: EPOPROSTENOL
     Dosage: 4NG/ML/MIN DURING LABOUR AND DELIVERY
     Route: 042
  2. SILDENAFIL. [Suspect]
     Active Substance: SILDENAFIL
     Indication: PULMONARY ARTERIAL HYPERTENSION
     Dosage: 20MG DURING PREGNANCY, LABOUR AND DELIVERY
     Route: 065
  3. EPOPROSTENOL. [Suspect]
     Active Substance: EPOPROSTENOL
     Indication: PULMONARY ARTERIAL HYPERTENSION
     Dosage: STARTED AT 29 TH WEEK
     Route: 042

REACTIONS (4)
  - Premature delivery [Recovered/Resolved]
  - Maternal exposure during pregnancy [Recovered/Resolved]
  - Pulmonary arterial hypertension [Unknown]
  - Condition aggravated [Unknown]
